FAERS Safety Report 20855441 (Version 2)
Quarter: 2022Q3

REPORT INFORMATION
  Report Type: Spontaneous
  Country: JP (occurrence: JP)
  Receive Date: 20220520
  Receipt Date: 20220721
  Transmission Date: 20221027
  Serious: Yes (Hospitalization, Other)
  Sender: FDA-Public Use
  Company Number: JP-BAYER-2022A068141

PATIENT
  Age: 80 Year
  Sex: Male
  Weight: 55.5 kg

DRUGS (3)
  1. XOFIGO [Suspect]
     Active Substance: RADIUM RA-223 DICHLORIDE
     Indication: Hormone-refractory prostate cancer
     Dosage: UNK, ONCE
     Dates: start: 20220325, end: 20220325
  2. XOFIGO [Suspect]
     Active Substance: RADIUM RA-223 DICHLORIDE
     Indication: Metastases to bone
  3. DENOSUMAB [Concomitant]
     Active Substance: DENOSUMAB
     Indication: Metastases to bone
     Dosage: DAILY DOSE 120 MG
     Dates: start: 20200205, end: 20220302

REACTIONS (7)
  - Bone abscess [Recovered/Resolved]
  - Osteomyelitis chronic [None]
  - Osteomyelitis acute [None]
  - Osteonecrosis of jaw [Recovered/Resolved]
  - Pain in jaw [Recovered/Resolved]
  - Facial pain [Recovered/Resolved]
  - Swelling face [Recovered/Resolved]

NARRATIVE: CASE EVENT DATE: 20220101
